FAERS Safety Report 8520205-8 (Version None)
Quarter: 2012Q3

REPORT INFORMATION
  Report Type: 
  Country: None (occurrence: None)
  Receive Date: 20120719
  Receipt Date: 20120713
  Transmission Date: 20120928
  Serious: Yes (Other)
  Sender: FDA-Public Use
  Company Number: GB-JNJFOC-20120707612

PATIENT
  Age: 20 Year
  Sex: Female
  Weight: 81 kg

DRUGS (7)
  1. METHOTREXATE [Concomitant]
     Dates: start: 20060404
  2. CONTRACEPTIVES [Concomitant]
     Dates: start: 20110101
  3. IBUPROFEN [Concomitant]
     Dates: start: 20100701
  4. CYCLOSPORINE [Concomitant]
     Dates: start: 20101118
  5. NAPROXEN [Concomitant]
     Dates: start: 20100107
  6. REMICADE [Suspect]
     Indication: PSORIASIS
     Route: 042
     Dates: start: 20111104
  7. FOLIC ACID [Concomitant]
     Dates: start: 20060404

REACTIONS (2)
  - ABORTION INDUCED [None]
  - MATERNAL EXPOSURE DURING PREGNANCY [None]
